APPROVED DRUG PRODUCT: ZAFIRLUKAST
Active Ingredient: ZAFIRLUKAST
Strength: 10MG
Dosage Form/Route: TABLET;ORAL
Application: A204928 | Product #001 | TE Code: AB
Applicant: RISING PHARMACEUTICALS INC
Approved: Aug 25, 2022 | RLD: No | RS: No | Type: RX